FAERS Safety Report 13706383 (Version 1)
Quarter: 2017Q2

REPORT INFORMATION
  Report Type: Report from Study
  Country: JP (occurrence: JP)
  Receive Date: 20170630
  Receipt Date: 20170630
  Transmission Date: 20170830
  Serious: Yes (Hospitalization, Other)
  Sender: FDA-Public Use
  Company Number: JP-GLAXOSMITHKLINE-JP2017JPN098783

PATIENT
  Age: 45 Year
  Sex: Male

DRUGS (13)
  1. AMBISOME [Suspect]
     Active Substance: AMPHOTERICIN B
     Indication: PULMONARY MYCOSIS
     Dosage: 150 MG, QD
     Route: 048
     Dates: start: 20161207, end: 20161226
  2. ATOVAQUONE. [Suspect]
     Active Substance: ATOVAQUONE
     Indication: PNEUMOCYSTIS JIROVECII PNEUMONIA
     Dosage: 1500 MG, BID
     Route: 048
     Dates: start: 20161120, end: 20161207
  3. VFEND [Suspect]
     Active Substance: VORICONAZOLE
     Indication: PULMONARY MYCOSIS
     Dosage: 300 MG, BID
     Route: 048
     Dates: start: 20161226, end: 20161227
  4. DAIPHEN [Concomitant]
     Active Substance: SULFAMETHOXAZOLE\TRIMETHOPRIM
     Indication: PNEUMOCYSTIS JIROVECII PNEUMONIA
     Dosage: 12 DF, TID
     Dates: start: 20161110, end: 20161119
  5. MEROPENEM. [Concomitant]
     Active Substance: MEROPENEM
     Indication: PNEUMONIA
     Dosage: 1 G, TID
     Dates: start: 20161207, end: 20161220
  6. ABACAVIRSULPHATE+DOLUTEGRAVIR+LAMIVUDINE [Suspect]
     Active Substance: ABACAVIR SULFATE\DOLUTEGRAVIR SODIUM\LAMIVUDINE
     Indication: HIV INFECTION
     Dosage: 1 DF, 1D
     Route: 048
     Dates: start: 20161215
  7. VALIXA [Suspect]
     Active Substance: VALGANCICLOVIR
     Indication: CYTOMEGALOVIRUS INFECTION
     Dosage: 900 MG, BID
     Route: 048
     Dates: start: 20161201, end: 20161207
  8. TEICOPLANIN [Suspect]
     Active Substance: TEICOPLANIN
     Indication: PNEUMONIA
     Dosage: 400 MG, BID
     Route: 048
     Dates: start: 20161211, end: 20161211
  9. ZOSYN [Concomitant]
     Active Substance: PIPERACILLIN SODIUM\TAZOBACTAM SODIUM
     Indication: PNEUMONIA
     Dosage: 4.5 G, TID
     Dates: start: 20161226, end: 20170108
  10. ATOVAQUONE. [Suspect]
     Active Substance: ATOVAQUONE
     Indication: ANTIFUNGAL PROPHYLAXIS
     Dosage: 1500 MG, QD
     Route: 048
     Dates: start: 20161211
  11. DAIPHEN [Concomitant]
     Active Substance: SULFAMETHOXAZOLE\TRIMETHOPRIM
     Indication: ANTIFUNGAL PROPHYLAXIS
     Dosage: 1 DF, QD
     Dates: start: 20161208, end: 20161211
  12. FAMVIR [Concomitant]
     Active Substance: FAMCICLOVIR
     Indication: HERPES ZOSTER
     Dosage: 500 MG, TID
     Dates: start: 20170301, end: 20170307
  13. FEXOFENADINE [Concomitant]
     Active Substance: FEXOFENADINE\FEXOFENADINE HYDROCHLORIDE
     Indication: ECZEMA
     Dosage: 60 MG, BID
     Dates: start: 20170126, end: 20170205

REACTIONS (7)
  - Anaemia [Not Recovered/Not Resolved]
  - Hepatic function abnormal [Not Recovered/Not Resolved]
  - White blood cell count decreased [Recovered/Resolved]
  - Upper respiratory tract inflammation [Recovered/Resolved]
  - Renal impairment [Recovered/Resolved]
  - Drug eruption [Recovered/Resolved]
  - Drug hypersensitivity [Recovered/Resolved]

NARRATIVE: CASE EVENT DATE: 20161207
